FAERS Safety Report 7647428-4 (Version None)
Quarter: 2011Q3

REPORT INFORMATION
  Report Type: 
  Country: None (occurrence: None)
  Receive Date: 20110801
  Receipt Date: 20110720
  Transmission Date: 20111222
  Serious: Yes (Hospitalization)
  Sender: FDA-Public Use
  Company Number: US-ASTRAZENECA-2008UW07371

PATIENT
  Age: 39 Year
  Sex: Female
  Weight: 137.4 kg

DRUGS (11)
  1. SEROQUEL [Suspect]
     Indication: BIPOLAR DISORDER
     Dosage: 100-400MG
     Route: 048
     Dates: start: 20011228
  2. TRILEPTAL [Concomitant]
     Dosage: TK 1 T PO QAM AND QD AT NOON THEN TK 2 TS PO QHS
     Route: 048
     Dates: start: 20011228
  3. ABILIFY [Concomitant]
     Dates: start: 20080301
  4. THORAZINE [Concomitant]
     Dates: start: 19880101, end: 19990101
  5. TRAZODONE HYDROCHLORIDE [Concomitant]
     Route: 048
  6. DIPHENHYDRAMINE HCL [Concomitant]
     Route: 048
     Dates: start: 20011228
  7. SEROQUEL [Suspect]
     Dosage: TK 1 T PO QAM AND TK 4 TS PO QHS
     Route: 048
     Dates: start: 20011228
  8. XENICAL [Concomitant]
     Dates: start: 20030101, end: 20080101
  9. THORAZINE [Concomitant]
     Route: 048
     Dates: start: 20011228
  10. PREVACID [Concomitant]
     Route: 048
     Dates: start: 20011230
  11. CYCLOBENZAPRINE [Concomitant]
     Route: 048
     Dates: start: 20060511

REACTIONS (6)
  - WEIGHT INCREASED [None]
  - RHEUMATOID ARTHRITIS [None]
  - OBESITY [None]
  - BACK PAIN [None]
  - TYPE 2 DIABETES MELLITUS [None]
  - UTERINE DISORDER [None]
